FAERS Safety Report 11394214 (Version 2)
Quarter: 2015Q4

REPORT INFORMATION
  Report Type: Report from Study
  Country: US (occurrence: US)
  Receive Date: 20150819
  Receipt Date: 20151210
  Transmission Date: 20160304
  Serious: Yes (Hospitalization)
  Sender: FDA-Public Use
  Company Number: US-ABBVIE-15K-163-1445767-00

PATIENT
  Sex: Female
  Weight: 79.45 kg

DRUGS (16)
  1. HUMIRA [Suspect]
     Active Substance: ADALIMUMAB
     Route: 058
     Dates: start: 201404, end: 201404
  2. ASPIRIN. [Concomitant]
     Active Substance: ASPIRIN
     Indication: PRODUCT USED FOR UNKNOWN INDICATION
  3. DEMADEX [Concomitant]
     Active Substance: TORSEMIDE
     Indication: PRODUCT USED FOR UNKNOWN INDICATION
  4. HUMIRA [Suspect]
     Active Substance: ADALIMUMAB
     Indication: CROHN^S DISEASE
     Route: 058
     Dates: start: 20140416, end: 20140416
  5. ZETIA [Concomitant]
     Active Substance: EZETIMIBE
     Indication: PRODUCT USED FOR UNKNOWN INDICATION
  6. IMDUR [Concomitant]
     Active Substance: ISOSORBIDE MONONITRATE
     Indication: PRODUCT USED FOR UNKNOWN INDICATION
  7. PENTASA [Concomitant]
     Active Substance: MESALAMINE
     Indication: PRODUCT USED FOR UNKNOWN INDICATION
  8. DILAUDID [Concomitant]
     Active Substance: HYDROMORPHONE HYDROCHLORIDE
     Indication: PRODUCT USED FOR UNKNOWN INDICATION
  9. HUMIRA [Suspect]
     Active Substance: ADALIMUMAB
     Route: 058
     Dates: start: 201405
  10. JANUVIA [Concomitant]
     Active Substance: SITAGLIPTIN PHOSPHATE
     Indication: PRODUCT USED FOR UNKNOWN INDICATION
  11. NEXIUM [Concomitant]
     Active Substance: ESOMEPRAZOLE MAGNESIUM
     Indication: PRODUCT USED FOR UNKNOWN INDICATION
  12. BENICAR [Concomitant]
     Active Substance: OLMESARTAN MEDOXOMIL
     Indication: PRODUCT USED FOR UNKNOWN INDICATION
  13. OMEGA 3 [Concomitant]
     Active Substance: OMEGA-3 FATTY ACIDS
     Indication: PRODUCT USED FOR UNKNOWN INDICATION
  14. CRESTOR [Concomitant]
     Active Substance: ROSUVASTATIN CALCIUM
     Indication: PRODUCT USED FOR UNKNOWN INDICATION
  15. XANAX [Concomitant]
     Active Substance: ALPRAZOLAM
     Indication: PRODUCT USED FOR UNKNOWN INDICATION
  16. TOPROL XL [Concomitant]
     Active Substance: METOPROLOL SUCCINATE
     Indication: PRODUCT USED FOR UNKNOWN INDICATION

REACTIONS (3)
  - Bronchitis [Recovering/Resolving]
  - Anaemia [Recovering/Resolving]
  - Renal failure [Recovered/Resolved]

NARRATIVE: CASE EVENT DATE: 2014
